FAERS Safety Report 8023738-6 (Version None)
Quarter: 2012Q1

REPORT INFORMATION
  Report Type: 
  Country: None (occurrence: None)
  Receive Date: 20120103
  Receipt Date: 20120103
  Transmission Date: 20120608
  Serious: Yes (Hospitalization)
  Sender: FDA-Public Use
  Company Number: None

PATIENT
  Age: 54 Year
  Sex: Male
  Weight: 115.5 kg

DRUGS (1)
  1. LITHIUM CARBONATE [Suspect]
     Indication: AFFECTIVE DISORDER
     Dates: start: 20091218, end: 20100330

REACTIONS (11)
  - TREMOR [None]
  - DELIRIUM [None]
  - ASTHENIA [None]
  - GAIT DISTURBANCE [None]
  - HYPOTENSION [None]
  - LEUKOCYTOSIS [None]
  - HYPOVOLAEMIA [None]
  - CONFUSIONAL STATE [None]
  - RENAL FAILURE ACUTE [None]
  - DIARRHOEA [None]
  - TOXICITY TO VARIOUS AGENTS [None]
